FAERS Safety Report 6017869-X (Version None)
Quarter: 2008Q4

REPORT INFORMATION
  Report Type: 
  Country: None (occurrence: None)
  Receive Date: 20081223
  Receipt Date: 20081219
  Transmission Date: 20090506
  Serious: Yes (Hospitalization)
  Sender: FDA-Public Use
  Company Number: FR-MERCK-0812FRA00081

PATIENT
  Sex: Female

DRUGS (4)
  1. ISENTRESS [Suspect]
     Indication: HIV INFECTION
     Route: 048
     Dates: start: 20070101, end: 20080801
  2. ISENTRESS [Suspect]
     Route: 048
     Dates: start: 20081001
  3. ATAZANAVIR [Concomitant]
     Indication: HIV INFECTION
     Route: 048
     Dates: end: 20080801
  4. [THERAPY UNSPECIFIED] [Concomitant]
     Indication: HIV INFECTION
     Route: 048

REACTIONS (1)
  - PANCREATITIS [None]
